FAERS Safety Report 6076506-9 (Version None)
Quarter: 2009Q1

REPORT INFORMATION
  Report Type: 
  Country: None (occurrence: None)
  Receive Date: 20090213
  Receipt Date: 20090202
  Transmission Date: 20090719
  Serious: Yes (Death, Life-Threatening, Other)
  Sender: FDA-Public Use
  Company Number: GB-JNJFOC-20090103020

PATIENT
  Sex: Female
  Weight: 64 kg

DRUGS (11)
  1. REMICADE [Suspect]
     Indication: RHEUMATOID ARTHRITIS
     Route: 042
  2. PREDNISOLONE [Concomitant]
  3. CLONAZEPAM [Concomitant]
  4. FOSAMAX [Concomitant]
  5. FRUSEMIDE [Concomitant]
  6. HYDROXYCHLOROQUINE SULFATE [Concomitant]
  7. OMEPRAZOLE [Concomitant]
  8. MS CONTIN [Concomitant]
  9. ORAMORPH SR [Concomitant]
  10. PAROXETINE HCL [Concomitant]
  11. VOLTAREN [Concomitant]

REACTIONS (2)
  - CHRONIC OBSTRUCTIVE PULMONARY DISEASE [None]
  - PULMONARY EMBOLISM [None]
